FAERS Safety Report 19830702 (Version 1)
Quarter: 2021Q3

REPORT INFORMATION
  Report Type: Spontaneous
  Country: US (occurrence: US)
  Receive Date: 20210913
  Receipt Date: 20210913
  Transmission Date: 20211014
  Serious: No
  Sender: FDA-Public Use
  Company Number: None

PATIENT
  Sex: Male

DRUGS (1)
  1. HUMIRA [Suspect]
     Active Substance: ADALIMUMAB
     Indication: COLITIS ULCERATIVE
     Dosage: 40MG/0.4ML  1 PEN EVERY14DAYS;?
     Route: 058
     Dates: start: 20210524

REACTIONS (3)
  - Costochondritis [None]
  - Palpitations [None]
  - Erythema nodosum [None]
